FAERS Safety Report 4392084-4 (Version None)
Quarter: 2004Q3

REPORT INFORMATION
  Report Type: 
  Country: None (occurrence: None)
  Receive Date: 20040702
  Receipt Date: 20040618
  Transmission Date: 20050211
  Serious: Yes (Hospitalization)
  Sender: FDA-Public Use
  Company Number: 200074

PATIENT
  Age: 48 Year
  Sex: Female

DRUGS (1)
  1. AVONEX [Suspect]
     Indication: MULTIPLE SCLEROSIS

REACTIONS (5)
  - DIZZINESS [None]
  - GASTRIC INFECTION [None]
  - GASTROENTERITIS VIRAL [None]
  - HEADACHE [None]
  - NERVOUS SYSTEM DISORDER [None]
